FAERS Safety Report 8897156 (Version 1)
Quarter: 2012Q4

REPORT INFORMATION
  Report Type: 
  Country: US (occurrence: US)
  Receive Date: 20121108
  Receipt Date: 20121108
  Transmission Date: 20130627
  Serious: No
  Sender: FDA-Public Use
  Company Number: US-AMGEN-USASP2012025489

PATIENT
  Sex: Female

DRUGS (7)
  1. ENBREL [Suspect]
     Indication: PRODUCT USED FOR UNKNOWN INDICATION
     Dosage: 25 mg, qwk
     Route: 058
  2. ZITHROMAX Z-PAK [Concomitant]
     Dosage: UNK
  3. TRAZODONE [Concomitant]
     Dosage: 50 mg, UNK
  4. CITALOPRAM [Concomitant]
     Dosage: 20 mg, UNK
  5. OMEPRAZOLE [Concomitant]
     Dosage: 40 mg, UNK
  6. HYDROCHLOROTH [Concomitant]
     Dosage: 25 mg, UNK
  7. THYROID [Concomitant]
     Dosage: 120 mg, UNK

REACTIONS (2)
  - Gait disturbance [Unknown]
  - Back pain [Unknown]
